FAERS Safety Report 6156989-6 (Version None)
Quarter: 2009Q2

REPORT INFORMATION
  Report Type: 
  Country: None (occurrence: None)
  Receive Date: 20090416
  Receipt Date: 20090413
  Transmission Date: 20091009
  Serious: Yes (Other)
  Sender: FDA-Public Use
  Company Number: CA-GENENTECH-264315

PATIENT
  Age: 59 Year
  Sex: Male

DRUGS (5)
  1. BEVACIZUMAB [Suspect]
     Indication: COLORECTAL CANCER METASTATIC
  2. IRINOTECAN HCL [Concomitant]
     Indication: COLORECTAL CANCER METASTATIC
  3. CAPECITABINE [Concomitant]
     Indication: COLORECTAL CANCER METASTATIC
  4. FLUOROURACIL [Concomitant]
     Indication: COLORECTAL CANCER METASTATIC
  5. FOLINIC ACID [Concomitant]
     Indication: COLORECTAL CANCER METASTATIC

REACTIONS (3)
  - GASTROINTESTINAL ANASTOMOTIC LEAK [None]
  - INFECTION [None]
  - INTESTINAL OBSTRUCTION [None]
